FAERS Safety Report 8586856-X (Version None)
Quarter: 2012Q3

REPORT INFORMATION
  Report Type: 
  Country: None (occurrence: None)
  Receive Date: 20120810
  Receipt Date: 20120726
  Transmission Date: 20120928
  Serious: Yes (Other)
  Sender: FDA-Public Use
  Company Number: CHPA2012US016784

PATIENT
  Age: 64 Year
  Sex: Female

DRUGS (3)
  1. NICOTINE [Suspect]
     Dosage: UNK, UNK
     Route: 062
  2. NICOTINE [Suspect]
     Indication: SMOKING CESSATION THERAPY
     Dosage: 21 MG, UNK
     Route: 062
  3. NICOTINE [Suspect]
     Dosage: 14 MG, UNK
     Route: 062

REACTIONS (6)
  - EMPHYSEMA [None]
  - PARAESTHESIA [None]
  - TREATMENT NONCOMPLIANCE [None]
  - OVERDOSE [None]
  - UNDERDOSE [None]
  - INAPPROPRIATE SCHEDULE OF DRUG ADMINISTRATION [None]
